FAERS Safety Report 7522213-2 (Version None)
Quarter: 2011Q2

REPORT INFORMATION
  Report Type: 
  Country: None (occurrence: None)
  Receive Date: 20110603
  Receipt Date: 20110501
  Transmission Date: 20111010
  Serious: No
  Sender: FDA-Public Use
  Company Number: US-BAYER-2011-039661

PATIENT
  Age: 51 Year
  Sex: Female
  Weight: 68 kg

DRUGS (1)
  1. ALEVE (CAPLET) [Suspect]
     Indication: BACK PAIN
     Dosage: 2 DF, ONCE
     Route: 048
     Dates: start: 20110501

REACTIONS (3)
  - URTICARIA [None]
  - PRURITUS [None]
  - OEDEMA PERIPHERAL [None]
